FAERS Safety Report 9303487 (Version 2)
Quarter: 2013Q3

REPORT INFORMATION
  Report Type: Spontaneous
  Country: IT (occurrence: IT)
  Receive Date: 20130522
  Receipt Date: 20130819
  Transmission Date: 20140515
  Serious: Yes (Hospitalization, Other)
  Sender: FDA-Public Use
  Company Number: IT-ELI_LILLY_AND_COMPANY-IT201305003987

PATIENT
  Age: 65 Year
  Sex: Male

DRUGS (2)
  1. CIALIS [Suspect]
     Indication: ERECTILE DYSFUNCTION
     Dosage: 20 MG, OTHER
     Route: 048
     Dates: start: 20130101, end: 20130329
  2. HYDROCHLOROTHIAZIDE W/TELMISARTAN [Concomitant]
     Indication: HYPERTENSION
     Dosage: 1 DF, QD
     Route: 048

REACTIONS (3)
  - Subdural haematoma [Recovering/Resolving]
  - Injury [Recovering/Resolving]
  - Road traffic accident [Recovering/Resolving]
